FAERS Safety Report 8972638 (Version 1)
Quarter: 2012Q4

REPORT INFORMATION
  Report Type: Report from Study
  Country: GB (occurrence: GB)
  Receive Date: 20121218
  Receipt Date: 20121218
  Transmission Date: 20130627
  Serious: Yes (Other)
  Sender: FDA-Public Use
  Company Number: GB-ROCHE-1168111

PATIENT
  Age: 44 Year
  Sex: Female

DRUGS (1)
  1. BEVACIZUMAB [Suspect]
     Indication: MALIGNANT MELANOMA
     Dosage: Date of last dose taken prior to SAE 03/May/2011. Total dose of avastin taken prior to SAE 2200 mg.
     Route: 065
     Dates: start: 20100524

REACTIONS (1)
  - Amenorrhoea [Recovered/Resolved]
